FAERS Safety Report 9326314 (Version 3)
Quarter: 2013Q3

REPORT INFORMATION
  Report Type: Spontaneous
  Country: DE (occurrence: DE)
  Receive Date: 20130604
  Receipt Date: 20130801
  Transmission Date: 20140515
  Serious: Yes (Other)
  Sender: FDA-Public Use
  Company Number: DE-CELGENEUS-062-21880-13053720

PATIENT
  Age: 59 Year
  Sex: Male
  Weight: 105 kg

DRUGS (14)
  1. REVLIMID [Suspect]
     Indication: PLASMA CELL MYELOMA
     Dosage: 10 MILLIGRAM
     Route: 048
     Dates: start: 20090901, end: 20121101
  2. REVLIMID [Suspect]
     Dosage: 10 MILLIGRAM
     Route: 048
     Dates: start: 20121201, end: 20130502
  3. THALIDOMIDE [Suspect]
     Indication: PLASMA CELL MYELOMA
     Dosage: 200 MILLIGRAM
     Route: 048
     Dates: start: 20030901, end: 20040830
  4. THALIDOMIDE [Suspect]
     Dosage: 50 MILLIGRAM
     Route: 048
     Dates: start: 20040901, end: 20041031
  5. THALIDOMIDE [Suspect]
     Dosage: 100 MILLIGRAM
     Route: 048
     Dates: start: 20041101, end: 20050601
  6. THALIDOMIDE [Suspect]
     Route: 048
     Dates: start: 200808, end: 200809
  7. THALIDOMIDE [Suspect]
     Route: 048
     Dates: end: 200909
  8. DEXAMETHASONE [Concomitant]
     Indication: PLASMA CELL MYELOMA
     Dosage: 4 MILLIGRAM
     Route: 065
     Dates: start: 200903
  9. ASPIRINE PROTECT [Concomitant]
     Indication: PROPHYLAXIS
     Dosage: 100 MILLIGRAM
     Route: 065
  10. LORZAAR [Concomitant]
     Indication: HYPERTENSION
     Dosage: 100 MILLIGRAM
     Route: 065
  11. BISOPROLOL [Concomitant]
     Indication: HYPERTENSION
     Route: 065
  12. REMERGIL [Concomitant]
     Indication: DEPRESSION
     Dosage: 15 MILLIGRAM
     Route: 065
  13. COTRIM FORTE [Concomitant]
     Indication: INFECTION
     Route: 065
  14. NITRENDIDPINE [Concomitant]
     Indication: PRODUCT USED FOR UNKNOWN INDICATION
     Route: 065

REACTIONS (2)
  - Malignant melanoma [Recovered/Resolved]
  - Squamous cell carcinoma of skin [Recovered/Resolved]
